FAERS Safety Report 18927472 (Version 1)
Quarter: 2021Q1

REPORT INFORMATION
  Report Type: Spontaneous
  Country: US (occurrence: US)
  Receive Date: 20210223
  Receipt Date: 20210223
  Transmission Date: 20210420
  Serious: No
  Sender: FDA-Public Use
  Company Number: US-FERRINGPH-2020FE05267

PATIENT
  Age: 49 Year
  Sex: Female

DRUGS (1)
  1. STIMATE [Suspect]
     Active Substance: DESMOPRESSIN ACETATE
     Indication: CONGENITAL THROMBOCYTE DISORDER
     Dosage: UNK
     Route: 065
     Dates: start: 201407, end: 202005

REACTIONS (7)
  - Hot flush [Unknown]
  - Flushing [Unknown]
  - Heart rate increased [Unknown]
  - Out of specification product use [Unknown]
  - Recalled product administered [Unknown]
  - Peripheral swelling [Unknown]
  - Sunburn [Unknown]

NARRATIVE: CASE EVENT DATE: 202005
